FAERS Safety Report 6562004-2 (Version None)
Quarter: 2010Q1

REPORT INFORMATION
  Report Type: 
  Country: None (occurrence: None)
  Receive Date: 20100130
  Receipt Date: 20091227
  Transmission Date: 20100710
  Serious: Yes (Other)
  Sender: FDA-Public Use
  Company Number: US-ABBOTT-09P-163-0501152-00

PATIENT
  Sex: Female
  Weight: 67.192 kg

DRUGS (5)
  1. HUMIRA [Suspect]
     Indication: PSORIATIC ARTHROPATHY
     Dates: start: 20071227, end: 20090120
  2. HUMIRA [Suspect]
     Dates: start: 20090801
  3. HUMIRA [Suspect]
     Dates: start: 20090124
  4. UNSPECIFIED HYPERTENSION MEDICATION [Concomitant]
     Indication: HYPERTENSION
  5. CELEBREX [Concomitant]
     Indication: DRUG USE FOR UNKNOWN INDICATION
     Dates: start: 20090701

REACTIONS (10)
  - ARTHRALGIA [None]
  - BLISTER [None]
  - BREAST CALCIFICATIONS [None]
  - BREAST CANCER IN SITU [None]
  - DIVERTICULITIS [None]
  - IMPAIRED HEALING [None]
  - INJECTION SITE REACTION [None]
  - IRRITABLE BOWEL SYNDROME [None]
  - SINUSITIS [None]
  - URINARY TRACT INFECTION [None]
